FAERS Safety Report 6568746-7 (Version None)
Quarter: 2010Q1

REPORT INFORMATION
  Report Type: 
  Country: None (occurrence: None)
  Receive Date: 20100203
  Receipt Date: 20100127
  Transmission Date: 20100710
  Serious: Yes (Other)
  Sender: FDA-Public Use
  Company Number: GXKR2010GB01220

PATIENT
  Age: 18 Year
  Sex: Female
  Weight: 89 kg

DRUGS (3)
  1. CO-CODAMOL (NGX) [Suspect]
     Indication: MIGRAINE
     Dosage: UNK
     Route: 065
     Dates: start: 20081230
  2. HUMAN PAPILLOMA VIRUS VACCINE [Suspect]
     Indication: PROPHYLAXIS
     Dosage: 1 DF, QD
     Dates: start: 20090218, end: 20090218
  3. MOVICOL [Suspect]
     Indication: CONSTIPATION
     Dosage: UNK
     Route: 065
     Dates: start: 20081230

REACTIONS (3)
  - ABORTION SPONTANEOUS [None]
  - DRUG EXPOSURE BEFORE PREGNANCY [None]
  - DRUG EXPOSURE DURING PREGNANCY [None]
